FAERS Safety Report 14845825 (Version 1)
Quarter: 2018Q2

REPORT INFORMATION
  Report Type: Report from Study
  Country: DE (occurrence: DE)
  Receive Date: 20180504
  Receipt Date: 20180504
  Transmission Date: 20180711
  Serious: Yes (Hospitalization, Congenital Anomaly)
  Sender: FDA-Public Use
  Company Number: DE-AMGEN-DEUNI2017168914

PATIENT

DRUGS (2)
  1. ETANERCEPT [Suspect]
     Active Substance: ETANERCEPT
     Indication: EXPOSURE DURING PREGNANCY
     Dosage: 25 MG, QWK
     Route: 064
     Dates: start: 200401
  2. ETANERCEPT [Suspect]
     Active Substance: ETANERCEPT
     Dosage: 25 MG, UNK
     Route: 064
     Dates: start: 201706

REACTIONS (2)
  - Congenital aortic anomaly [Unknown]
  - Maternal exposure during pregnancy [Unknown]

NARRATIVE: CASE EVENT DATE: 20180307
